FAERS Safety Report 24747577 (Version 1)
Quarter: 2024Q4

REPORT INFORMATION
  Report Type: Spontaneous
  Country: US (occurrence: None)
  Receive Date: 20241217
  Receipt Date: 20241217
  Transmission Date: 20250115
  Serious: Yes (Hospitalization)
  Sender: Public
  Company Number: None

PATIENT
  Age: 43 Year
  Sex: Female

DRUGS (1)
  1. TERIFLUNOMIDE [Suspect]
     Active Substance: TERIFLUNOMIDE
     Indication: Multiple sclerosis
     Dosage: FREQUENCY : DAILY;?
     Route: 048
     Dates: start: 20240311

REACTIONS (7)
  - Peripheral swelling [None]
  - Vein disorder [None]
  - Burning sensation [None]
  - Skin tightness [None]
  - Flushing [None]
  - Skin warm [None]
  - Deep vein thrombosis [None]

NARRATIVE: CASE EVENT DATE: 20241201
